FAERS Safety Report 11941851 (Version 2)
Quarter: 2016Q1

REPORT INFORMATION
  Report Type: Spontaneous
  Country: US (occurrence: US)
  Receive Date: 20160124
  Receipt Date: 20160204
  Transmission Date: 20160526
  Serious: No
  Sender: FDA-Public Use
  Company Number: ALCN2016US000655

PATIENT
  Age: 56 Year
  Sex: Female

DRUGS (1)
  1. IOPIDINE [Suspect]
     Active Substance: APRACLONIDINE HYDROCHLORIDE
     Indication: PRODUCT USED FOR UNKNOWN INDICATION
     Dosage: UNK GTT, UNK
     Route: 047

REACTIONS (1)
  - Diplopia [Unknown]
